FAERS Safety Report 8606100-4 (Version None)
Quarter: 2012Q3

REPORT INFORMATION
  Report Type: 
  Country: None (occurrence: None)
  Receive Date: 20120820
  Receipt Date: 20120816
  Transmission Date: 20120928
  Serious: Yes (Hospitalization)
  Sender: FDA-Public Use
  Company Number: US-TEVA-354443USA

PATIENT
  Sex: Male
  Weight: 54.026 kg

DRUGS (2)
  1. VELCADE [Concomitant]
     Indication: LYMPHOMA
     Route: 042
     Dates: start: 20120601
  2. TREANDA [Suspect]
     Indication: LYMPHOMA
     Dosage: 123 MILLIGRAM DAILY;
     Dates: start: 20120601

REACTIONS (4)
  - PNEUMOTHORAX [None]
  - TACHYCARDIA [None]
  - ASTHENIA [None]
  - HYPERTENSION [None]
